FAERS Safety Report 9633555 (Version 1)
Quarter: 2013Q4

REPORT INFORMATION
  Report Type: Report from Study
  Country: US (occurrence: US)
  Receive Date: 20131021
  Receipt Date: 20131021
  Transmission Date: 20140711
  Serious: Yes (Hospitalization, Other)
  Sender: FDA-Public Use
  Company Number: PHHO2013US013359

PATIENT
  Age: 58 Year
  Sex: Female

DRUGS (5)
  1. GILENYA [Suspect]
     Indication: RELAPSING-REMITTING MULTIPLE SCLEROSIS
     Dosage: 0.5 MG, QD
     Route: 048
     Dates: start: 20121205
  2. GLATIRAMER [Suspect]
     Indication: RELAPSING-REMITTING MULTIPLE SCLEROSIS
     Dosage: 20 MG, QD
     Route: 058
     Dates: start: 20120906
  3. TRIAMTERENE/HCTZ [Concomitant]
     Indication: HYPERTENSION
     Dosage: 37.5/25 MG, QD
     Route: 048
  4. LEVOTHYROXIN [Concomitant]
     Indication: HYPOTHYROIDISM
     Dosage: 88 UG, QD
     Route: 048
  5. LEXAPRO [Concomitant]
     Indication: DEPRESSION
     Dosage: 10 MG, QD
     Route: 048
     Dates: start: 20120730

REACTIONS (1)
  - Gastrointestinal stromal tumour [Recovered/Resolved]
